FAERS Safety Report 7270274-0 (Version None)
Quarter: 2011Q1

REPORT INFORMATION
  Report Type: 
  Country: None (occurrence: None)
  Receive Date: 20110202
  Receipt Date: 20110131
  Transmission Date: 20110831
  Serious: Yes (Other)
  Sender: FDA-Public Use
  Company Number: US-ABBOTT-11P-163-0701644-00

PATIENT
  Sex: Female
  Weight: 45.4 kg

DRUGS (4)
  1. SINGULAIR [Concomitant]
     Indication: PRODUCT USED FOR UNKNOWN INDICATION
  2. HUMIRA [Suspect]
     Indication: CROHN'S DISEASE
     Dates: start: 20081101, end: 20081201
  3. HUMIRA [Suspect]
     Route: 058
     Dates: start: 20081201
  4. ADVAIR [Concomitant]
     Indication: PRODUCT USED FOR UNKNOWN INDICATION

REACTIONS (3)
  - MALABSORPTION [None]
  - DIARRHOEA [None]
  - INTESTINAL OBSTRUCTION [None]
